FAERS Safety Report 6800962-9 (Version None)
Quarter: 2010Q2

REPORT INFORMATION
  Report Type: 
  Country: None (occurrence: None)
  Receive Date: 20100629
  Receipt Date: 20100625
  Transmission Date: 20101027
  Serious: Yes (Death, Hospitalization)
  Sender: FDA-Public Use
  Company Number: PHHY2010IN41548

PATIENT
  Age: 80 Year
  Sex: Male

DRUGS (1)
  1. ASUNRA [Suspect]
     Dosage: 1 TABLET OF ASUNRA OF 400 MG
     Route: 048

REACTIONS (2)
  - BLOOD PRESSURE ABNORMAL [None]
  - DEATH [None]
